FAERS Safety Report 9358785 (Version 1)
Quarter: 2013Q2

REPORT INFORMATION
  Report Type: Spontaneous
  Country: US (occurrence: US)
  Receive Date: 20130620
  Receipt Date: 20130620
  Transmission Date: 20140414
  Serious: Yes (Hospitalization)
  Sender: FDA-Public Use
  Company Number: US-BAYER-2013-074616

PATIENT
  Age: 40 Year
  Sex: Female

DRUGS (5)
  1. YASMIN [Suspect]
  2. OCELLA [Suspect]
  3. TYLENOL [PARACETAMOL] [Concomitant]
     Indication: HEADACHE
  4. XANAX [Concomitant]
  5. LIPITOR [Concomitant]

REACTIONS (2)
  - Cerebral infarction [None]
  - Cerebrovascular accident [None]
